FAERS Safety Report 5318735-5 (Version None)
Quarter: 2007Q2

REPORT INFORMATION
  Report Type: 
  Country: None (occurrence: None)
  Receive Date: 20070508
  Receipt Date: 20070427
  Transmission Date: 20071010
  Serious: Yes (Hospitalization, Other)
  Sender: FDA-Public Use
  Company Number: GB-JNJFOC-20070406517

PATIENT
  Sex: Male
  Weight: 76 kg

DRUGS (9)
  1. REMICADE [Suspect]
     Route: 042
  2. REMICADE [Suspect]
     Indication: RHEUMATOID ARTHRITIS
     Route: 042
  3. SULFASALAZINE [Concomitant]
  4. METHOTREXATE [Concomitant]
  5. ARTHROTEC [Concomitant]
  6. FOLIC ACID [Concomitant]
  7. HYDROXYCHLOROQUINE SULFATE [Concomitant]
  8. SERTRALINE [Concomitant]
  9. TRAMADOL HCL [Concomitant]

REACTIONS (4)
  - DIVERTICULUM [None]
  - GASTRITIS [None]
  - HIATUS HERNIA [None]
  - WEIGHT DECREASED [None]
